FAERS Safety Report 9186416 (Version 4)
Quarter: 2013Q2

REPORT INFORMATION
  Report Type: Spontaneous
  Country: DE (occurrence: DE)
  Receive Date: 20130325
  Receipt Date: 20130627
  Transmission Date: 20140414
  Serious: Yes (Other)
  Sender: FDA-Public Use
  Company Number: DE-JNJFOC-20130307526

PATIENT
  Sex: Female

DRUGS (6)
  1. TOVIAZ [Concomitant]
     Indication: INCONTINENCE
     Route: 048
     Dates: start: 2012
  2. XEPLION [Suspect]
     Indication: SCHIZOPHRENIA
     Route: 030
     Dates: start: 2012, end: 20130312
  3. SOLIAN [Suspect]
     Indication: PRODUCT USED FOR UNKNOWN INDICATION
     Route: 065
  4. ATOSIL [Suspect]
     Indication: PRODUCT USED FOR UNKNOWN INDICATION
     Route: 065
  5. PRONEURIN [Concomitant]
     Indication: SCHIZOPHRENIA
     Route: 048
     Dates: start: 2012
  6. AMISULPRIDE [Concomitant]
     Indication: SCHIZOPHRENIA
     Route: 048
     Dates: start: 2012

REACTIONS (6)
  - Dyspnoea [Recovered/Resolved]
  - Presyncope [Recovered/Resolved]
  - Hypersensitivity [Recovered/Resolved]
  - Circulatory collapse [Recovered/Resolved]
  - Cough [Recovered/Resolved]
  - Dyskinesia [Recovered/Resolved]
